FAERS Safety Report 12568071 (Version 1)
Quarter: 2016Q3

REPORT INFORMATION
  Report Type: Spontaneous
  Country: US (occurrence: US)
  Receive Date: 20160718
  Receipt Date: 20160718
  Transmission Date: 20161109
  Serious: No
  Sender: FDA-Public Use
  Company Number: US-ASTELLAS-2016US015539

PATIENT
  Sex: Male

DRUGS (1)
  1. MYRBETRIQ [Suspect]
     Active Substance: MIRABEGRON
     Indication: POLLAKIURIA
     Route: 048
     Dates: start: 20160418, end: 20160419

REACTIONS (3)
  - Diarrhoea [Unknown]
  - Breath odour [Unknown]
  - Dysgeusia [Unknown]

NARRATIVE: CASE EVENT DATE: 20160419
